FAERS Safety Report 12382797 (Version 1)
Quarter: 2016Q2

REPORT INFORMATION
  Report Type: Spontaneous
  Country: US (occurrence: US)
  Receive Date: 20160518
  Receipt Date: 20160518
  Transmission Date: 20160815
  Serious: Yes (Other)
  Sender: FDA-Public Use
  Company Number: US-SA-2016SA095908

PATIENT
  Age: 71 Year
  Sex: Male

DRUGS (7)
  1. MONTELUKAST [Concomitant]
     Active Substance: MONTELUKAST SODIUM
  2. SPIRIVA [Concomitant]
     Active Substance: TIOTROPIUM BROMIDE MONOHYDRATE
  3. VITAMINS NOS [Concomitant]
     Active Substance: VITAMINS
  4. HYDROCODONE [Concomitant]
     Active Substance: HYDROCODONE
  5. LASIX [Suspect]
     Active Substance: FUROSEMIDE
     Indication: SWELLING
     Dosage: FREQUENCY: 3-4 TIMES A DAY
     Route: 065
  6. LASIX [Suspect]
     Active Substance: FUROSEMIDE
     Indication: SWELLING
     Route: 065
  7. LOSARTAN. [Concomitant]
     Active Substance: LOSARTAN

REACTIONS (3)
  - Arteriosclerosis [Unknown]
  - Cardiac murmur [Unknown]
  - Swelling [Unknown]
